FAERS Safety Report 4342196-6 (Version None)
Quarter: 2004Q1

REPORT INFORMATION
  Report Type: 
  Country: None (occurrence: None)
  Receive Date: 20040329
  Receipt Date: 20031205
  Transmission Date: 20041129
  Serious: No
  Sender: FDA-Public Use
  Company Number: USA031254108

PATIENT
  Age: 9 Year
  Sex: Male
  Weight: 39 kg

DRUGS (2)
  1. STRATTERA [Suspect]
     Indication: ABNORMAL BEHAVIOUR
     Dosage: 25 MG/DAY
     Dates: start: 20031203
  2. ZYPREXA [Suspect]
     Dates: start: 20031001

REACTIONS (2)
  - EYE PAIN [None]
  - RETCHING [None]
